APPROVED DRUG PRODUCT: METHOTREXATE LPF
Active Ingredient: METHOTREXATE SODIUM
Strength: EQ 25MG BASE/ML
Dosage Form/Route: INJECTABLE;INJECTION
Application: N011719 | Product #007
Applicant: HOSPIRA INC
Approved: Mar 31, 1982 | RLD: Yes | RS: No | Type: DISCN